FAERS Safety Report 12999710 (Version 5)
Quarter: 2017Q1

REPORT INFORMATION
  Report Type: Report from Study
  Country: CA (occurrence: CA)
  Receive Date: 20161205
  Receipt Date: 20170227
  Transmission Date: 20170428
  Serious: Yes (Other)
  Sender: FDA-Public Use
  Company Number: PHHY2016CA166327

PATIENT
  Age: 32 Year
  Sex: Male

DRUGS (1)
  1. GILENYA [Suspect]
     Active Substance: FINGOLIMOD HYDROCHLORIDE
     Indication: RELAPSING-REMITTING MULTIPLE SCLEROSIS
     Dosage: UNK
     Route: 048
     Dates: start: 20161116

REACTIONS (10)
  - Fall [Recovered/Resolved]
  - Chest discomfort [Recovered/Resolved]
  - Pigmentation disorder [Unknown]
  - Depressed level of consciousness [Recovered/Resolved]
  - Anxiety [Unknown]
  - Retinal exudates [Unknown]
  - Anxiety [Recovered/Resolved]
  - Heart rate decreased [Recovered/Resolved]
  - Syncope [Unknown]
  - Dizziness [Recovered/Resolved]

NARRATIVE: CASE EVENT DATE: 20161116
